FAERS Safety Report 6670232-0 (Version None)
Quarter: 2010Q2

REPORT INFORMATION
  Report Type: 
  Country: None (occurrence: None)
  Receive Date: 20100406
  Receipt Date: 20100311
  Transmission Date: 20101027
  Serious: No
  Sender: FDA-Public Use
  Company Number: US-ALLERGAN-1003306US

PATIENT
  Age: 28 Year
  Sex: Female

DRUGS (1)
  1. LATISSE [Suspect]
     Indication: GROWTH OF EYELASHES
     Dosage: UNK
     Dates: start: 20091001

REACTIONS (1)
  - MADAROSIS [None]
